FAERS Safety Report 10516777 (Version 2)
Quarter: 2015Q1

REPORT INFORMATION
  Report Type: Spontaneous
  Country: CA (occurrence: CA)
  Receive Date: 20141014
  Receipt Date: 20150313
  Transmission Date: 20150720
  Serious: Yes (Other)
  Sender: FDA-Public Use
  Company Number: CA-BRISTOL-MYERS SQUIBB COMPANY-21455449

PATIENT
  Age: 35 Year
  Sex: Male
  Weight: 118 kg

DRUGS (1)
  1. SPRYCEL [Suspect]
     Active Substance: DASATINIB
     Indication: CHRONIC MYELOID LEUKAEMIA
     Dosage: UNK
     Route: 065
     Dates: start: 2014

REACTIONS (2)
  - Abortion spontaneous [Unknown]
  - Exposure via father [Unknown]

NARRATIVE: CASE EVENT DATE: 20140719
